FAERS Safety Report 9513874 (Version 1)
Quarter: 2013Q1

REPORT INFORMATION
  Report Type: Spontaneous
  Country: US (occurrence: None)
  Receive Date: 20130305
  Receipt Date: 20130305
  Transmission Date: 20140127
  Serious: Yes (Other)
  Sender: FDA-Public Use
  Company Number: 163-21880-12043016

PATIENT
  Sex: 0

DRUGS (2)
  1. REVLIMID (LENALIDOMIDE) (CAPSULES) [Suspect]
     Indication: PLASMA CELL MYELOMA
     Dosage: DAYS 1-14, PO
     Route: 048
  2. BORTEZOMIB (BORTEZOMIB) (UNKNOWN) [Suspect]
     Indication: PLASMA CELL MYELOMA
     Dosage: 1.3 MG/M2, DAYS 1, 4, 8, 11 OF ECH 21-D CYCLE, UNK

REACTIONS (7)
  - Pneumonitis [None]
  - Pancytopenia [None]
  - Neutropenia [None]
  - Thrombocytopenia [None]
  - Anaemia [None]
  - Leukopenia [None]
  - Neuropathy peripheral [None]
